FAERS Safety Report 12866862 (Version 1)
Quarter: 2016Q4

REPORT INFORMATION
  Report Type: Spontaneous
  Country: SE (occurrence: SE)
  Receive Date: 20161020
  Receipt Date: 20161020
  Transmission Date: 20170207
  Serious: Yes (Hospitalization)
  Sender: FDA-Public Use
  Company Number: SE-TEVA-700274ROM

PATIENT
  Age: 76 Year
  Sex: Female

DRUGS (4)
  1. LEVETIRACETAM. [Suspect]
     Active Substance: LEVETIRACETAM
     Route: 042
  2. DONEPEZIL. [Suspect]
     Active Substance: DONEPEZIL
  3. LEVETIRACETAM. [Suspect]
     Active Substance: LEVETIRACETAM
  4. LEVETIRACETAM. [Suspect]
     Active Substance: LEVETIRACETAM

REACTIONS (2)
  - Cognitive disorder [Not Recovered/Not Resolved]
  - Hallucination [Not Recovered/Not Resolved]
